FAERS Safety Report 15326523 (Version 3)
Quarter: 2019Q4

REPORT INFORMATION
  Report Type: Spontaneous
  Country: US (occurrence: US)
  Receive Date: 20180828
  Receipt Date: 20191118
  Transmission Date: 20200122
  Serious: Yes (Other)
  Sender: FDA-Public Use
  Company Number: US-009507513-1808USA009396

PATIENT
  Sex: Male

DRUGS (2)
  1. KEYTRUDA [Suspect]
     Active Substance: PEMBROLIZUMAB
     Indication: DESMOPLASTIC MELANOMA
     Dosage: 200 MILLIGRAM, CYCLICAL (5 CYCLES)
  2. IPILIMUMAB [Suspect]
     Active Substance: IPILIMUMAB
     Indication: DESMOPLASTIC MELANOMA
     Dosage: 1 MILLIGRAM/KILOGRAM

REACTIONS (3)
  - Immune system disorder [Recovered/Resolved]
  - Hypersensitivity vasculitis [Recovered/Resolved]
  - Toxicity to various agents [Recovered/Resolved]
